FAERS Safety Report 5779158-8 (Version None)
Quarter: 2008Q2

REPORT INFORMATION
  Report Type: 
  Country: None (occurrence: None)
  Receive Date: 20080619
  Receipt Date: 20080616
  Transmission Date: 20081010
  Serious: Yes (Death, Disabling, Other)
  Sender: FDA-Public Use
  Company Number: US-BRISTOL-MYERS SQUIBB COMPANY-14037188

PATIENT
  Age: 55 Year
  Sex: Male

DRUGS (4)
  1. ORENCIA [Suspect]
     Indication: RHEUMATOID ARTHRITIS
     Dosage: AGAIN GIVEN ON JAN 2,2008. DAY 0,15,28.
     Route: 042
     Dates: start: 20071227
  2. PREDNISONE TAB [Suspect]
     Route: 042
  3. HUMIRA [Concomitant]
  4. PREDNISONE TAB [Concomitant]

REACTIONS (4)
  - MUSCLE SPASMS [None]
  - NEUROPATHY PERIPHERAL [None]
  - SEPSIS [None]
  - VASCULITIS [None]
